FAERS Safety Report 6906649-6 (Version None)
Quarter: 2010Q3

REPORT INFORMATION
  Report Type: 
  Country: None (occurrence: None)
  Receive Date: 20100804
  Receipt Date: 20100726
  Transmission Date: 20110219
  Serious: Yes (Hospitalization, Other)
  Sender: FDA-Public Use
  Company Number: JP-PFIZER INC-2010079773

PATIENT
  Age: 57 Year
  Sex: Male
  Weight: 82 kg

DRUGS (8)
  1. SELARA [Suspect]
     Indication: HYPERTENSION
     Dosage: 25 MG, 2X/DAY
     Route: 048
     Dates: start: 20080101
  2. AMLODIPINE BESYLATE [Interacting]
     Indication: HYPERTENSION
     Dosage: 5 MG, 2X/DAY
     Route: 048
     Dates: start: 20080101
  3. ARTIST [Interacting]
     Indication: HYPERTENSION
     Dosage: 2.5 MG, 1X/DAY
     Route: 048
     Dates: start: 20080101
  4. LASIX [Interacting]
     Indication: HYPERTENSION
     Dosage: 10 MG, 1X/DAY
     Route: 048
     Dates: start: 20080101
  5. SEVOFLURANE [Interacting]
     Indication: GENERAL ANAESTHESIA
     Dosage: 1.5 %, 1X/DAY
     Dates: start: 20100621, end: 20100621
  6. WARFARIN [Interacting]
     Indication: AORTIC VALVE REPLACEMENT
     Dosage: 1 MG, 1X/DAY
     Route: 048
     Dates: start: 20080101, end: 20100613
  7. FENTANYL [Interacting]
     Indication: GENERAL ANAESTHESIA
     Dosage: 300 MG, 1X/DAY
     Route: 042
     Dates: start: 20100621, end: 20100621
  8. ULTIVA [Interacting]
     Indication: GENERAL ANAESTHESIA
     Dosage: 0.1 G, 1X/DAY
     Route: 042
     Dates: start: 20100621, end: 20100621

REACTIONS (3)
  - DRUG INTERACTION [None]
  - PROCEDURAL HYPOTENSION [None]
  - SALIVARY GLAND NEOPLASM [None]
